FAERS Safety Report 17913428 (Version 1)
Quarter: 2020Q2

REPORT INFORMATION
  Report Type: Spontaneous
  Country: US (occurrence: US)
  Receive Date: 20200618
  Receipt Date: 20200618
  Transmission Date: 20200714
  Serious: No
  Sender: FDA-Public Use
  Company Number: US-THERAPEUTICSMD-2020TMD02397

PATIENT
  Age: 67 Year
  Sex: Female
  Weight: 69.39 kg

DRUGS (5)
  1. ASPIRIN. [Concomitant]
     Active Substance: ASPIRIN
  2. SPIRONOLACTONE WITH HCTZ [Concomitant]
     Active Substance: HYDROCHLOROTHIAZIDE\SPIRONOLACTONE
     Dosage: UNK
  3. ALENDRONATE [Concomitant]
     Active Substance: ALENDRONATE SODIUM
     Dosage: 70 MG, 1X/WEEK
  4. IMVEXXY [Suspect]
     Active Substance: ESTRADIOL
     Indication: VAGINAL DISORDER
     Dosage: 10 ?G, 1X/DAY, AT NIGHT
     Route: 067
     Dates: start: 20200522, end: 20200523
  5. LOSARTAN. [Concomitant]
     Active Substance: LOSARTAN
     Dosage: 100 MG, 1X/DAY

REACTIONS (7)
  - Vaginal haemorrhage [Recovered/Resolved]
  - Dry skin [Not Recovered/Not Resolved]
  - Skin exfoliation [Not Recovered/Not Resolved]
  - Skin erosion [Not Recovered/Not Resolved]
  - Product residue present [Recovered/Resolved]
  - Off label use [Recovered/Resolved]
  - Facial pain [Unknown]

NARRATIVE: CASE EVENT DATE: 20200522
